FAERS Safety Report 6123787-9 (Version None)
Quarter: 2009Q1

REPORT INFORMATION
  Report Type: 
  Country: None (occurrence: None)
  Receive Date: 20090319
  Receipt Date: 20090313
  Transmission Date: 20090719
  Serious: Yes (Life-Threatening)
  Sender: FDA-Public Use
  Company Number: FR-CELGENEUS-056-50794-09030963

PATIENT
  Sex: Male

DRUGS (6)
  1. VIDAZA [Suspect]
     Indication: MYELODYSPLASTIC SYNDROME
     Route: 058
     Dates: start: 20090202, end: 20090203
  2. ZELITREX [Concomitant]
     Route: 048
     Dates: start: 20090202
  3. GENTAMICIN [Concomitant]
     Route: 051
     Dates: start: 20090203, end: 20090203
  4. CLAVENTIN [Concomitant]
     Route: 051
     Dates: start: 20090203, end: 20090203
  5. VASTAREL [Concomitant]
     Indication: DRUG USE FOR UNKNOWN INDICATION
     Route: 048
  6. KARDEGIC [Concomitant]
     Indication: DRUG USE FOR UNKNOWN INDICATION
     Route: 048

REACTIONS (1)
  - HYPERSENSITIVITY [None]
